FAERS Safety Report 23749337 (Version 1)
Quarter: 2024Q2

REPORT INFORMATION
  Report Type: Report from Study
  Country: US (occurrence: US)
  Receive Date: 20240416
  Receipt Date: 20240416
  Transmission Date: 20240716
  Serious: Yes (Other)
  Sender: FDA-Public Use
  Company Number: US-ABBVIE-5718413

PATIENT
  Age: 76 Year
  Sex: Male
  Weight: 96 kg

DRUGS (1)
  1. RINVOQ [Suspect]
     Active Substance: UPADACITINIB
     Indication: Dermatitis atopic
     Dosage: FORM STRENGTH: 30MG
     Route: 048

REACTIONS (1)
  - Pulmonary thrombosis [Recovering/Resolving]

NARRATIVE: CASE EVENT DATE: 20240301
